FAERS Safety Report 11139523 (Version 1)
Quarter: 2015Q2

REPORT INFORMATION
  Report Type: Spontaneous
  Country: US (occurrence: None)
  Receive Date: 20150526
  Receipt Date: 20150526
  Transmission Date: 20150821
  Serious: Yes (Death, Hospitalization)
  Sender: FDA-Public Use
  Company Number: None

PATIENT
  Age: 76 Year
  Sex: Female
  Weight: 77.11 kg

DRUGS (1)
  1. IMURAN [Suspect]
     Active Substance: AZATHIOPRINE
     Indication: PULMONARY FIBROSIS
     Route: 048
     Dates: start: 20140312, end: 20141125

REACTIONS (4)
  - Respiratory failure [None]
  - Upper respiratory tract infection [None]
  - Asthenia [None]
  - Fatigue [None]
